FAERS Safety Report 14178945 (Version 1)
Quarter: 2017Q4

REPORT INFORMATION
  Report Type: Spontaneous
  Country: FR (occurrence: FR)
  Receive Date: 20171110
  Receipt Date: 20171110
  Transmission Date: 20180321
  Serious: Yes (Hospitalization)
  Sender: FDA-Public Use
  Company Number: FR-PFIZER INC-2017482187

PATIENT
  Age: 71 Year
  Sex: Male

DRUGS (3)
  1. TRIATEC [Suspect]
     Active Substance: RAMIPRIL
     Dosage: 5 MG, 2X/DAY
     Route: 048
     Dates: start: 20170923, end: 20171002
  2. CEFOTAXIME [Suspect]
     Active Substance: CEFOTAXIME SODIUM
     Indication: AORTITIS SALMONELLA
     Dosage: 6 G, DAILY
     Route: 042
     Dates: start: 20170920
  3. BACTRIM [Suspect]
     Active Substance: SULFAMETHOXAZOLE\TRIMETHOPRIM
     Indication: AORTITIS SALMONELLA
     Dosage: 800 MG, DAILY
     Route: 042
     Dates: start: 20170921, end: 20171005

REACTIONS (2)
  - Toxic skin eruption [Not Recovered/Not Resolved]
  - Rash maculo-papular [Not Recovered/Not Resolved]

NARRATIVE: CASE EVENT DATE: 20171001
